FAERS Safety Report 9963851 (Version 2)
Quarter: 2014Q2

REPORT INFORMATION
  Report Type: Spontaneous
  Country: KR (occurrence: KR)
  Receive Date: 20140305
  Receipt Date: 20140611
  Transmission Date: 20141212
  Serious: Yes (Other)
  Sender: FDA-Public Use
  Company Number: KR-JNJFOC-20140300496

PATIENT
  Sex: 0

DRUGS (4)
  1. INFLIXIMAB, RECOMBINANT [Suspect]
     Indication: RHEUMATOID ARTHRITIS
     Route: 042
  2. CT-P13 (REMICADE BIOSIMILAR) [Suspect]
     Indication: RHEUMATOID ARTHRITIS
     Route: 065
  3. METHOTREXATE [Concomitant]
     Dosage: 12.5 TO 25 MG
     Route: 065
  4. FOLIC ACID [Concomitant]
     Dosage: }=5 MG
     Route: 048

REACTIONS (1)
  - Breast cancer [Unknown]
